FAERS Safety Report 16213093 (Version 1)
Quarter: 2019Q2

REPORT INFORMATION
  Report Type: Spontaneous
  Country: US (occurrence: US)
  Receive Date: 20190418
  Receipt Date: 20190418
  Transmission Date: 20190711
  Serious: No
  Sender: FDA-Public Use
  Company Number: US-US WORLDMEDS, LLC-USW201902-000426

PATIENT
  Age: 81 Year
  Sex: Male

DRUGS (13)
  1. BUPROPION. [Concomitant]
     Active Substance: BUPROPION
  2. TELMISARTAN. [Concomitant]
     Active Substance: TELMISARTAN
  3. CARBIDOPA/LEVODOPA [Concomitant]
     Active Substance: CARBIDOPA\LEVODOPA
  4. ACYCLOVIR. [Concomitant]
     Active Substance: ACYCLOVIR
  5. SPIRONOLACTONE. [Concomitant]
     Active Substance: SPIRONOLACTONE
  6. PREDNISONE. [Concomitant]
     Active Substance: PREDNISONE
  7. FLECAINIDE [Concomitant]
     Active Substance: FLECAINIDE
  8. SIMVASTATIN. [Concomitant]
     Active Substance: SIMVASTATIN
  9. MODAFINIL. [Concomitant]
     Active Substance: MODAFINIL
  10. MICARDIS [Concomitant]
     Active Substance: TELMISARTAN
  11. METOPROLOL. [Concomitant]
     Active Substance: METOPROLOL
  12. XADAGO [Suspect]
     Active Substance: SAFINAMIDE MESYLATE
     Indication: PARKINSON^S DISEASE
  13. ALPRAZOLAM. [Concomitant]
     Active Substance: ALPRAZOLAM

REACTIONS (1)
  - Hallucination, visual [Recovered/Resolved]
